FAERS Safety Report 7934553-3 (Version None)
Quarter: 2011Q4

REPORT INFORMATION
  Report Type: 
  Country: None (occurrence: None)
  Receive Date: 20111122
  Receipt Date: 20111115
  Transmission Date: 20120403
  Serious: Yes (Life-Threatening, Hospitalization)
  Sender: FDA-Public Use
  Company Number: US-JNJFOC-20111107605

PATIENT
  Age: 55 Year
  Sex: Female

DRUGS (3)
  1. ACETAMINOPHEN [Suspect]
     Route: 065
  2. UNSPECIFED MEDICATIONS [Suspect]
     Indication: PAIN
  3. ACETAMINOPHEN [Suspect]
     Indication: PAIN
     Route: 065

REACTIONS (3)
  - MULTIPLE DRUG OVERDOSE [None]
  - ACUTE HEPATIC FAILURE [None]
  - DRUG ADMINISTRATION ERROR [None]
